FAERS Safety Report 23124111 (Version 1)
Quarter: 2023Q4

REPORT INFORMATION
  Report Type: Spontaneous
  Country: US (occurrence: US)
  Receive Date: 20231030
  Receipt Date: 20231030
  Transmission Date: 20240110
  Serious: Yes (Other)
  Sender: FDA-Public Use
  Company Number: US-SA-2023SA331408

PATIENT
  Age: 29 Year
  Sex: Male

DRUGS (6)
  1. ELOCTATE [Suspect]
     Active Substance: EFMOROCTOCOG ALFA
     Indication: Factor VIII deficiency
     Dosage: 1500 U
     Route: 041
     Dates: start: 202304
  2. ELOCTATE [Suspect]
     Active Substance: EFMOROCTOCOG ALFA
     Indication: Factor VIII deficiency
     Dosage: 1500 U
     Route: 041
     Dates: start: 202304
  3. ELOCTATE [Suspect]
     Active Substance: EFMOROCTOCOG ALFA
     Dosage: 2300 U (2070-2530), BIW FOR BLEED
     Route: 041
     Dates: start: 202304
  4. ELOCTATE [Suspect]
     Active Substance: EFMOROCTOCOG ALFA
     Dosage: 2300 U (2070-2530), BIW FOR BLEED
     Route: 041
     Dates: start: 202304
  5. ELOCTATE [Suspect]
     Active Substance: EFMOROCTOCOG ALFA
     Dosage: 2300 U (2070-2530), EVERY 24 HOURS PRN FOR BLEED
     Route: 041
     Dates: start: 202304
  6. ELOCTATE [Suspect]
     Active Substance: EFMOROCTOCOG ALFA
     Dosage: 2300 U (2070-2530), EVERY 24 HOURS PRN FOR BLEED
     Route: 041
     Dates: start: 202304

REACTIONS (1)
  - Haemorrhage [Recovered/Resolved]

NARRATIVE: CASE EVENT DATE: 20231022
